FAERS Safety Report 5305692-0 (Version None)
Quarter: 2007Q2

REPORT INFORMATION
  Report Type: 
  Country: None (occurrence: None)
  Receive Date: 20070423
  Receipt Date: 20070423
  Transmission Date: 20071010
  Serious: Yes (Hospitalization)
  Sender: FDA-Public Use
  Company Number: None

PATIENT
  Age: 59 Year
  Sex: Male

DRUGS (2)
  1. METOLAZONE [Suspect]
     Dosage: 5MG QAM PO
     Route: 048
  2. FUROSEMIDE [Suspect]
     Dosage: 40M DAILY PO
     Route: 048

REACTIONS (6)
  - ASTHENIA [None]
  - HYPERHIDROSIS [None]
  - HYPOKALAEMIA [None]
  - NAUSEA [None]
  - VOMITING [None]
  - WEIGHT DECREASED [None]
